FAERS Safety Report 9842477 (Version 5)
Quarter: 2014Q3

REPORT INFORMATION
  Report Type: Spontaneous
  Country: CN (occurrence: CN)
  Receive Date: 20140124
  Receipt Date: 20140718
  Transmission Date: 20150326
  Serious: Yes (Other)
  Sender: FDA-Public Use
  Company Number: PHHY2014CN008401

PATIENT
  Age: 80 Year
  Sex: Male

DRUGS (3)
  1. COMTAN [Suspect]
     Active Substance: ENTACAPONE
     Dosage: 0.5 DF, QD
     Route: 048
     Dates: start: 201401
  2. COMTAN [Suspect]
     Active Substance: ENTACAPONE
     Indication: PARKINSON^S DISEASE
     Dosage: 0.5 DF, BID (200 MG)
     Route: 048
     Dates: start: 20100101
  3. COMTAN [Suspect]
     Active Substance: ENTACAPONE
     Dosage: 0.5 DF, BID
     Route: 048
     Dates: end: 20140122

REACTIONS (11)
  - Coma [Unknown]
  - Depressed level of consciousness [Unknown]
  - Fatigue [Not Recovered/Not Resolved]
  - Muscle rigidity [Unknown]
  - Lethargy [Unknown]
  - Inflammation [Unknown]
  - Aphagia [Unknown]
  - Drug ineffective [Not Recovered/Not Resolved]
  - Muscle spasms [Unknown]
  - White blood cell count increased [Unknown]
  - Confusional state [Not Recovered/Not Resolved]

NARRATIVE: CASE EVENT DATE: 201401
